FAERS Safety Report 24298447 (Version 1)
Quarter: 2024Q3

REPORT INFORMATION
  Report Type: Spontaneous
  Country: BE (occurrence: BE)
  Receive Date: 20240909
  Receipt Date: 20240909
  Transmission Date: 20241016
  Serious: Yes (Other)
  Sender: BAUSCH AND LOMB
  Company Number: BE-BRISTOL-MYERS SQUIBB COMPANY-2024-139043

PATIENT
  Age: 73 Year
  Sex: Female

DRUGS (2)
  1. DEXAMETHASONE [Suspect]
     Active Substance: DEXAMETHASONE
     Indication: Plasma cell myeloma
     Route: 065
  2. REVLIMID [Suspect]
     Active Substance: LENALIDOMIDE
     Indication: Plasma cell myeloma
     Route: 065

REACTIONS (1)
  - Immunodeficiency [Unknown]
